FAERS Safety Report 16382577 (Version 2)
Quarter: 2019Q3

REPORT INFORMATION
  Report Type: Report from Study
  Country: JP (occurrence: JP)
  Receive Date: 20190603
  Receipt Date: 20190703
  Transmission Date: 20191004
  Serious: Yes (Hospitalization)
  Sender: FDA-Public Use
  Company Number: JP-EISAI MEDICAL RESEARCH-EC-2019-056976

PATIENT
  Age: 69 Year
  Sex: Male
  Weight: 74 kg

DRUGS (6)
  1. SAMSCA [Concomitant]
     Active Substance: TOLVAPTAN
  2. SPIRONOLACTONE. [Concomitant]
     Active Substance: SPIRONOLACTONE
  3. LIVACT [Concomitant]
     Active Substance: AMINO ACIDS
  4. LENVIMA [Suspect]
     Active Substance: LENVATINIB
     Indication: HEPATOCELLULAR CARCINOMA
     Route: 048
     Dates: start: 20190126, end: 20190204
  5. RIFXIMA [Concomitant]
     Active Substance: RIFAXIMIN
  6. FUROSEMIDE. [Concomitant]
     Active Substance: FUROSEMIDE

REACTIONS (1)
  - Hepatic encephalopathy [Recovering/Resolving]

NARRATIVE: CASE EVENT DATE: 20190204
